FAERS Safety Report 13815074 (Version 1)
Quarter: 2017Q3

REPORT INFORMATION
  Report Type: Report from Study
  Country: IE (occurrence: GB)
  Receive Date: 20170731
  Receipt Date: 20170731
  Transmission Date: 20171127
  Serious: Yes (Life-Threatening)
  Sender: FDA-Public Use
  Company Number: IE-PFIZER INC-1310758

PATIENT
  Age: 68 Year
  Sex: Male

DRUGS (7)
  1. BLINDED THERAPY [Suspect]
     Active Substance: INVESTIGATIONAL PRODUCT
     Indication: ACUTE MYELOID LEUKAEMIA
     Dosage: 140 MG, 90 MG/M^2 ON DAYS 1 AND 4; ACTUAL DOSE 140 MG/DAY
     Route: 042
     Dates: start: 20120521, end: 20120521
  2. PARACETAMOL [Concomitant]
     Active Substance: ACETAMINOPHEN
     Dosage: 1 G, PRN
     Route: 048
     Dates: start: 20120515
  3. BLINDED THERAPY [Suspect]
     Active Substance: INVESTIGATIONAL PRODUCT
     Dosage: 140 MG, 90 MG/M^2 ON DAYS 1 AND 4; ACTUAL DOSE 140 MG/DAY
     Route: 042
     Dates: start: 20120524, end: 20120524
  4. CYTARABINE. [Suspect]
     Active Substance: CYTARABINE
     Indication: ACUTE MYELOID LEUKAEMIA
     Dosage: 1560 MG/ DAY, ON DAYS 1-5 (ACTUAL DOSE 1.56 G/DAY)
     Route: 042
     Dates: start: 20120521, end: 20120525
  5. ALLOPURINOL. [Concomitant]
     Active Substance: ALLOPURINOL
     Dosage: 300 MG, UNK
     Route: 048
     Dates: start: 20120517
  6. OMEPRAZOLE. [Concomitant]
     Active Substance: OMEPRAZOLE
     Dosage: 20 MG, UNK
     Route: 048
     Dates: start: 20120516
  7. GRANULOCYTE COLONY STIMULATING FACTOR [Concomitant]
     Active Substance: GRANULOCYTE COLONY-STIMULATING FACTOR NOS
     Dosage: 263 UG, UNK
     Route: 058
     Dates: start: 20120524

REACTIONS (1)
  - Hypotension [Recovered/Resolved]

NARRATIVE: CASE EVENT DATE: 20120526
